FAERS Safety Report 14438693 (Version 1)
Quarter: 2018Q1

REPORT INFORMATION
  Report Type: Spontaneous
  Country: FR (occurrence: FR)
  Receive Date: 20180125
  Receipt Date: 20180125
  Transmission Date: 20180509
  Serious: Yes (Other)
  Sender: FDA-Public Use
  Company Number: FR-ASTRAZENECA-2018SE07429

PATIENT
  Age: 13 Year
  Sex: Male

DRUGS (3)
  1. OMEPRAZOLE. [Suspect]
     Active Substance: OMEPRAZOLE
     Indication: PROPHYLAXIS AGAINST GASTROINTESTINAL ULCER
     Route: 048
     Dates: start: 20160430, end: 201609
  2. ISOTRETINOIN. [Suspect]
     Active Substance: ISOTRETINOIN
     Indication: ACNE CONGLOBATA
     Route: 048
     Dates: start: 20160430
  3. CORTANCYL [Suspect]
     Active Substance: PREDNISONE
     Indication: ACNE CONGLOBATA
     Route: 048
     Dates: start: 20160430, end: 201609

REACTIONS (7)
  - Orthostatic hypotension [Recovered/Resolved]
  - Muscle spasms [Recovered/Resolved]
  - Disturbance in attention [Recovered/Resolved]
  - Vertigo [Recovered/Resolved]
  - Cheilitis [Recovered/Resolved]
  - Epistaxis [Recovered/Resolved]
  - Abdominal pain upper [Recovered/Resolved]

NARRATIVE: CASE EVENT DATE: 201607
